FAERS Safety Report 4459242-1 (Version None)
Quarter: 2004Q3

REPORT INFORMATION
  Report Type: 
  Country: None (occurrence: None)
  Receive Date: 20040920
  Receipt Date: 20040920
  Transmission Date: 20050211
  Serious: Yes (Hospitalization)
  Sender: FDA-Public Use
  Company Number: None

PATIENT
  Age: 71 Year
  Sex: Female

DRUGS (15)
  1. HEPARIN [Suspect]
     Indication: ANTICOAGULANT THERAPY
     Dosage: 5000 UNITS SCQ8
     Route: 058
  2. FLUTICASONE PROPIONATE [Concomitant]
  3. SALMETEROL [Concomitant]
  4. DOCUSATE [Concomitant]
  5. TOLTERIDONE [Concomitant]
  6. AMITRIPTYLINE HCL [Concomitant]
  7. ROSUVASTATIN [Concomitant]
  8. PANTOPRAZOLE [Concomitant]
  9. CITALOPRAM [Concomitant]
  10. ASPIRIN [Concomitant]
  11. METPROLOL HCL [Concomitant]
  12. ADVAIR DISKUS 100/50 [Concomitant]
  13. CHLORALHYDRATE [Concomitant]
  14. ALBUTEROL [Concomitant]
  15. TEMAZEPAM [Concomitant]

REACTIONS (5)
  - ACTIVATED PARTIAL THROMBOPLASTIN TIME PROLONGED [None]
  - HAEMOGLOBIN DECREASED [None]
  - INTERNATIONAL NORMALISED RATIO INCREASED [None]
  - PLATELET COUNT DECREASED [None]
  - PROTHROMBIN TIME PROLONGED [None]
